FAERS Safety Report 24258061 (Version 1)
Quarter: 2024Q3

REPORT INFORMATION
  Report Type: Spontaneous
  Country: US (occurrence: None)
  Receive Date: 20240827
  Receipt Date: 20240827
  Transmission Date: 20241017
  Serious: No
  Sender: Public
  Company Number: None

PATIENT
  Age: 54 Year
  Sex: Female

DRUGS (2)
  1. AMBRISENTAN [Suspect]
     Active Substance: AMBRISENTAN
     Indication: Pulmonary arterial hypertension
     Dosage: FREQUENCY : DAILY;?
     Route: 048
     Dates: start: 202103
  2. C-TREPROSTINIL(3ML)RM [Concomitant]

REACTIONS (4)
  - Hypervolaemia [None]
  - Loss of personal independence in daily activities [None]
  - Dyspnoea [None]
  - COVID-19 [None]

NARRATIVE: CASE EVENT DATE: 20240822
